FAERS Safety Report 5234869-8 (Version None)
Quarter: 2007Q1

REPORT INFORMATION
  Report Type: 
  Country: None (occurrence: None)
  Receive Date: 20070209
  Receipt Date: 20070205
  Transmission Date: 20070707
  Serious: Yes (Hospitalization)
  Sender: FDA-Public Use
  Company Number: IT-MERCK-0702ITA00005

PATIENT
  Age: 81 Year
  Sex: Male

DRUGS (8)
  1. FOSAMAX PLUS D [Suspect]
     Indication: OSTEOPOROSIS
     Route: 048
     Dates: start: 20070118, end: 20070125
  2. PREDNISONE [Concomitant]
     Route: 048
  3. CHLOROQUINE [Concomitant]
     Route: 048
  4. CALCIUM CARBONATE AND CHOLECALCIFEROL [Concomitant]
     Route: 065
  5. LANSOPRAZOLE [Concomitant]
     Route: 048
  6. AMOXICILLIN AND CLAVULANATE POTASSIUM [Concomitant]
     Route: 048
  7. ENOXAPARIN SODIUM [Concomitant]
     Route: 051
  8. ILOPROST [Concomitant]
     Route: 048

REACTIONS (1)
  - HAEMOLYTIC ANAEMIA [None]
